FAERS Safety Report 6532981-4 (Version None)
Quarter: 2010Q1

REPORT INFORMATION
  Report Type: 
  Country: None (occurrence: None)
  Receive Date: 20100111
  Receipt Date: 20100106
  Transmission Date: 20100710
  Serious: Yes (Death)
  Sender: FDA-Public Use
  Company Number: PHHY2010US00853

PATIENT
  Sex: Female

DRUGS (4)
  1. ZOMETA [Suspect]
     Dosage: UNK
  2. FEMARA [Concomitant]
  3. ATARAX [Concomitant]
  4. ZOCOR [Concomitant]

REACTIONS (1)
  - DEATH [None]
